FAERS Safety Report 6417648-5 (Version None)
Quarter: 2009Q4

REPORT INFORMATION
  Report Type: 
  Country: None (occurrence: None)
  Receive Date: 20091028
  Receipt Date: 20091020
  Transmission Date: 20100525
  Serious: Yes (Other)
  Sender: FDA-Public Use
  Company Number: US-JNJFOC-20091007109

PATIENT
  Sex: Male
  Weight: 70.31 kg

DRUGS (5)
  1. DURAGESIC-100 [Suspect]
     Route: 062
  2. DURAGESIC-100 [Suspect]
     Route: 062
  3. DURAGESIC-100 [Suspect]
     Indication: BACK PAIN
     Route: 062
  4. VICODIN [Concomitant]
     Indication: PAIN
     Dosage: DOSE: 5 - 500 MG
     Route: 048
  5. TOPROL-XL [Concomitant]
     Indication: HYPERTENSION
     Route: 048

REACTIONS (4)
  - BIPOLAR DISORDER [None]
  - DRUG PRESCRIBING ERROR [None]
  - TREMOR [None]
  - WITHDRAWAL SYNDROME [None]
